FAERS Safety Report 14149620 (Version 1)
Quarter: 2017Q4

REPORT INFORMATION
  Report Type: Spontaneous
  Country: US (occurrence: US)
  Receive Date: 20171101
  Receipt Date: 20171101
  Transmission Date: 20180321
  Serious: Yes (Other)
  Sender: FDA-Public Use
  Company Number: US-BAYER-2017-206496

PATIENT
  Sex: Female

DRUGS (1)
  1. BAYER WOMENS [Suspect]
     Active Substance: ASPIRIN\CALCIUM CARBONATE
     Indication: AMAUROSIS FUGAX
     Dosage: 1 DF, UNK
     Route: 048

REACTIONS (4)
  - Haemorrhagic diathesis [Unknown]
  - Increased tendency to bruise [Unknown]
  - Product use in unapproved indication [None]
  - Off label use [None]
